FAERS Safety Report 24294185 (Version 1)
Quarter: 2024Q3

REPORT INFORMATION
  Report Type: Spontaneous
  Country: CN (occurrence: CN)
  Receive Date: 20240906
  Receipt Date: 20240906
  Transmission Date: 20241016
  Serious: Yes (Other)
  Sender: BAXTER
  Company Number: None

PATIENT
  Age: 60 Year
  Sex: Female
  Weight: 66 kg

DRUGS (5)
  1. CYCLOPHOSPHAMIDE [Suspect]
     Active Substance: CYCLOPHOSPHAMIDE
     Indication: Diffuse large B-cell lymphoma
     Dosage: 1.28 G, ONE TIME IN ONE DAY, D1, AS A PART OF R-CHOP REGIMEN
     Route: 041
     Dates: start: 20240731, end: 20240731
  2. EPIRUBICIN [Suspect]
     Active Substance: EPIRUBICIN
     Indication: Diffuse large B-cell lymphoma
     Dosage: 120 MG, ONE TIME IN ONE DAY, D1, AS A PART OF R-CHOP REGIMEN
     Route: 041
     Dates: start: 20240731, end: 20240731
  3. VINDESINE SULFATE [Suspect]
     Active Substance: VINDESINE SULFATE
     Indication: Diffuse large B-cell lymphoma
     Dosage: 4 MG, ONE TIME IN ONE DAY, D1, AS A PART OF R-CHOP REGIMEN
     Route: 041
     Dates: start: 20240731, end: 20240731
  4. PREDNISONE ACETATE [Suspect]
     Active Substance: PREDNISONE ACETATE
     Indication: Diffuse large B-cell lymphoma
     Dosage: 100 MG, ONE TIME IN ONE DAY, D1-D5, AS A PART OF R-CHOP REGIMEN, HIGH DOSE
     Route: 048
     Dates: start: 20240731, end: 20240804
  5. RITUXIMAB [Suspect]
     Active Substance: RITUXIMAB
     Indication: Diffuse large B-cell lymphoma
     Dosage: 640 MG, D0, AS A PART OF R-CHOP REGIMEN
     Route: 065
     Dates: start: 20240730

REACTIONS (3)
  - Gastrointestinal tract irritation [Unknown]
  - Nausea [Recovering/Resolving]
  - Vomiting [Recovering/Resolving]

NARRATIVE: CASE EVENT DATE: 20240801
